FAERS Safety Report 9592478 (Version 6)
Quarter: 2014Q4

REPORT INFORMATION
  Report Type: Spontaneous
  Country: US (occurrence: US)
  Receive Date: 20131004
  Receipt Date: 20141027
  Transmission Date: 20150529
  Serious: Yes (Hospitalization, Disabling, Other)
  Sender: FDA-Public Use
  Company Number: US-009507513-1203USA03460

PATIENT
  Sex: Male
  Weight: 131.52 kg

DRUGS (7)
  1. ALENDRONATE SODIUM. [Suspect]
     Active Substance: ALENDRONATE SODIUM
     Indication: OSTEOPOROSIS
     Dosage: 70 MG, QW
     Route: 048
     Dates: start: 200904, end: 201002
  2. FOSAMAX PLUS D [Suspect]
     Active Substance: ALENDRONATE SODIUM\CHOLECALCIFEROL
     Indication: OSTEOPOROSIS
     Dosage: 70 MG, UNK
     Route: 048
     Dates: start: 2006, end: 201012
  3. CARBIDOPA (+) LEVODOPA [Concomitant]
     Active Substance: CARBIDOPA\LEVODOPA
     Indication: PARKINSON^S DISEASE
     Dosage: UNK
     Dates: start: 2001
  4. OMEGA-3 MARINE TRIGLYCERIDES [Concomitant]
     Active Substance: FISH OIL
     Dosage: 1200 DF, QD
     Dates: start: 1980
  5. COMTAN [Concomitant]
     Active Substance: ENTACAPONE
     Indication: PARKINSON^S DISEASE
     Dosage: 200 MG, QID
     Dates: start: 2001
  6. FOSAMAX [Suspect]
     Active Substance: ALENDRONATE SODIUM
     Indication: OSTEOPOROSIS
     Dosage: 70 MG, QW
     Route: 048
     Dates: start: 200304
  7. FOSAMAX [Suspect]
     Active Substance: ALENDRONATE SODIUM
     Indication: OSTEOPENIA

REACTIONS (55)
  - Tibia fracture [Unknown]
  - Meniscus injury [Unknown]
  - Tinnitus [Unknown]
  - Meniscus injury [Unknown]
  - Tendon disorder [Unknown]
  - Femur fracture [Unknown]
  - Hand fracture [Unknown]
  - Intervertebral disc protrusion [Unknown]
  - Coronary artery disease [Unknown]
  - Joint effusion [Unknown]
  - Oedema peripheral [Unknown]
  - Head injury [Not Recovered/Not Resolved]
  - Radius fracture [Unknown]
  - Lumbar spinal stenosis [Unknown]
  - Wheezing [Unknown]
  - Rash [Unknown]
  - Lung operation [Unknown]
  - Thrombocytopenia [Recovered/Resolved]
  - Patella fracture [Unknown]
  - Peripheral swelling [Unknown]
  - Hypertension [Unknown]
  - Stress fracture [Unknown]
  - Bone density decreased [Unknown]
  - Ankle fracture [Unknown]
  - Sleep apnoea syndrome [Unknown]
  - Lumbar radiculopathy [Unknown]
  - Patella fracture [Unknown]
  - Enchondroma [Unknown]
  - Bone density decreased [Unknown]
  - Hypomagnesaemia [Unknown]
  - Road traffic accident [Not Recovered/Not Resolved]
  - Dental caries [Unknown]
  - Scapula fracture [Unknown]
  - Spinal osteoarthritis [Unknown]
  - Rhinorrhoea [Unknown]
  - Cardiac murmur [Unknown]
  - Hyperlipidaemia [Unknown]
  - Osteoarthritis [Unknown]
  - Chest injury [Not Recovered/Not Resolved]
  - Open reduction of fracture [Unknown]
  - Joint dislocation [Unknown]
  - Injury [Unknown]
  - Body height decreased [Unknown]
  - Ligament sprain [Unknown]
  - Balance disorder [Unknown]
  - Osteoarthritis [Unknown]
  - Body height decreased [Unknown]
  - Fall [Unknown]
  - Pain in extremity [Unknown]
  - Osteoporosis [Unknown]
  - Deafness [Unknown]
  - Femur fracture [Unknown]
  - Anaemia [Unknown]
  - Osteoarthritis [Unknown]
  - Haematochezia [Unknown]

NARRATIVE: CASE EVENT DATE: 200311
